FAERS Safety Report 24647897 (Version 1)
Quarter: 2024Q4

REPORT INFORMATION
  Report Type: Spontaneous
  Country: GB (occurrence: GB)
  Receive Date: 20241121
  Receipt Date: 20241121
  Transmission Date: 20250115
  Serious: Yes (Hospitalization, Other)
  Sender: TEVA
  Company Number: GB-CELLTRION HEALTHCARE HUNGARY KFT-2022GB022294

PATIENT
  Age: 49 Year
  Sex: Male

DRUGS (203)
  1. VINCRISTINE [Suspect]
     Active Substance: VINCRISTINE
     Indication: B-cell lymphoma
     Dosage: UNK UNK, CYCLIC (6 CYCLE, RCHOP CHEMO - DOSE)
     Route: 065
     Dates: end: 20220512
  2. VINCRISTINE [Suspect]
     Active Substance: VINCRISTINE
     Indication: B-cell lymphoma
     Dosage: UNK, CYCLIC (6 CYCLE RCHOP CHEMO DOSE0)
     Route: 065
     Dates: end: 20220512
  3. VINCRISTINE [Suspect]
     Active Substance: VINCRISTINE
     Indication: B-cell lymphoma
     Dosage: UNK (RCHOP CHEMO - DOSE AND EXACT ROUTE NOT KNOWN)
     Route: 065
     Dates: end: 20220512
  4. VINCRISTINE [Suspect]
     Active Substance: VINCRISTINE
     Indication: B-cell lymphoma
     Dosage: UNK, CYCLIC (6 CYCLE, RCHOP CHEMO - DOSE, GASTRO RESISTANT)
     Route: 065
     Dates: end: 20220512
  5. VINCRISTINE [Suspect]
     Active Substance: VINCRISTINE
     Indication: B-cell lymphoma
     Dosage: UNK, CYCLIC (1, CYCLICAL, 6 CYCLE, RCHOP CHEMO-DOSE,GASTRO)
     Route: 065
     Dates: end: 20220512
  6. RITUXIMAB [Suspect]
     Active Substance: RITUXIMAB
     Indication: B-cell lymphoma
     Dosage: UNK
     Route: 065
     Dates: end: 20220512
  7. DOXORUBICIN [Suspect]
     Active Substance: DOXORUBICIN
     Indication: B-cell lymphoma
     Dosage: UNK, CYCLIC (6 CYCLE, RCHOP CHEMO - DOSE) DOSAGE FORM: INJECTION; ; ADDITIONAL INFO: RCHOP CHEMO ...
     Route: 065
     Dates: end: 20220512
  8. DOXORUBICIN [Suspect]
     Active Substance: DOXORUBICIN
     Indication: B-cell lymphoma
     Dosage: UNK, CYCLIC (6 CYCLE, RCHOP CHEMO - DOSE) DOSAGE FORM: INJECTION; ; ADDITIONAL INFO: RCHOP CHEMO ...
     Route: 065
     Dates: end: 20220512
  9. DOXORUBICIN [Suspect]
     Active Substance: DOXORUBICIN
     Indication: B-cell lymphoma
     Dosage: UNK, CYCLIC (6 CYCLE, RCHOP CHEMO - DOSE) DOSAGE FORM: INJECTION; ; ADDITIONAL INFO: RCHOP CHEMO ...
     Route: 065
     Dates: end: 20220512
  10. DOXORUBICIN [Suspect]
     Active Substance: DOXORUBICIN
     Indication: B-cell lymphoma
     Dosage: TIME INTERVAL: CYCLICAL: UNK, CYCLIC (6 CYCLE, RCHOP CHEMO - DOSE)
     Route: 065
     Dates: end: 20220512
  11. DOXORUBICIN [Suspect]
     Active Substance: DOXORUBICIN
     Indication: B-cell lymphoma
     Dosage: UNK (RCHOP CHEMO - DOSE AND EXACT ROUTE NOT KNOWN); ; ADDITIONAL INFO: RCHOP CHEMO - DOSE AND EXA...
     Route: 065
     Dates: end: 20220512
  12. DOXORUBICIN [Suspect]
     Active Substance: DOXORUBICIN
     Indication: B-cell lymphoma
     Dosage: UNK, CYCLIC (6 CYCLE RCHOP CHEMO- DOSE AND ROUTE UNKNOWN 12/MAY/2022.); ; ADDITIONAL INFO: RCHOP ...
     Route: 065
     Dates: end: 20220512
  13. DOXORUBICIN [Suspect]
     Active Substance: DOXORUBICIN
     Indication: B-cell lymphoma
     Dosage: DOSE:1, CYCLE/ RCHOP CHEMO - DOSE AND EXACT ROUTE NOT KNOWN CYCLIC (6 CYCLE, RCHOP CHEMO - DOSE, ...
     Route: 065
     Dates: end: 20220512
  14. DOXORUBICIN [Suspect]
     Active Substance: DOXORUBICIN
     Indication: B-cell lymphoma
     Dosage: UNK, CYCLIC (6 CYCLE, RCHOP CHEMO - DOSE) DOSAGE FORM: INJECTION; ; ADDITIONAL INFO: RCHOP CHEMO ...
     Route: 065
     Dates: end: 20220512
  15. DOXORUBICIN [Suspect]
     Active Substance: DOXORUBICIN
     Indication: B-cell lymphoma
     Dosage: RCHOP CHEMO - DOSE AND EXACT ROUTE NOT KNOWN;/DOSE), MOST RECENT DOSE ON 12/MAY/2022. UNK, CYCLIC...
     Route: 065
     Dates: end: 20220512
  16. DOXORUBICIN [Suspect]
     Active Substance: DOXORUBICIN
     Indication: B-cell lymphoma
     Dosage: UNK UNK, CYCLIC; ; ADDITIONAL INFO: RCHOP CHEMO - DOSE AND EXACT ROUTE NOT KNOWN.
     Route: 065
     Dates: end: 20220512
  17. DOXORUBICIN [Suspect]
     Active Substance: DOXORUBICIN
     Indication: B-cell lymphoma
     Dosage: RCHOP CHEMO; ; ADDITIONAL INFO: RCHOP CHEMO - DOSE AND EXACT ROUTE NOT KNOWN.
     Route: 065
     Dates: end: 20220512
  18. DOXORUBICIN [Suspect]
     Active Substance: DOXORUBICIN
     Indication: B-cell lymphoma
     Dosage: UNK, CYCLIC (6 CYCLE, RCHOP CHEMO - DOSE) DOSAGE FORM: INJECTION; ; ADDITIONAL INFO: RCHOP CHEMO ...
     Route: 065
     Dates: end: 20220512
  19. DOXORUBICIN [Suspect]
     Active Substance: DOXORUBICIN
     Indication: B-cell lymphoma
     Dosage: UNK, CYCLIC (6 CYCLE, RCHOP CHEMO - DOSE) DOSAGE FORM: INJECTION
     Route: 065
  20. DOXORUBICIN [Suspect]
     Active Substance: DOXORUBICIN
     Indication: B-cell lymphoma
     Dosage: UNK; ; ADDITIONAL INFO: RCHOP CHEMO - DOSE AND EXACT ROUTE NOT KNOWN.
     Route: 065
     Dates: end: 20220512
  21. DOXORUBICIN [Suspect]
     Active Substance: DOXORUBICIN
     Indication: B-cell lymphoma
     Dosage: UNK, CYCLIC (6 CYCLE, RCHOP CHEMO - DOSE), RCHOP CHEMO - DOSE AND EXACT ROUTE NOT KNOWN; ; ADDITI...
     Route: 065
     Dates: end: 20220512
  22. DOXORUBICIN [Suspect]
     Active Substance: DOXORUBICIN
     Indication: B-cell lymphoma
     Dosage: MOST RECENT DOSE ON 12/MAY/2022; ;
     Route: 065
     Dates: end: 20220512
  23. DOXORUBICIN [Suspect]
     Active Substance: DOXORUBICIN
     Indication: B-cell lymphoma
     Dosage: TIME INTERVAL: CYCLICAL: ^DOSAGE FORM: INJECTION, CYCLIC (6 CYCLE, RCHOP CHEMO - DOSE), RCHOP CHE...
     Route: 065
     Dates: end: 20220512
  24. DOXORUBICIN [Suspect]
     Active Substance: DOXORUBICIN
     Indication: B-cell lymphoma
     Dosage: RCHOP CHEMO - DOSE AND EXACT ROUTE NOT KNOWN.
     Route: 065
     Dates: end: 20220512
  25. DOXORUBICIN [Suspect]
     Active Substance: DOXORUBICIN
     Indication: B-cell lymphoma
     Dosage: TIME INTERVAL: CYCLICAL: RCHOP CHEMO - DOSE AND EXACT ROUTE NOT KNOWN. CYCLIC (6 CYCLE, RCHOP CHE...
     Route: 065
     Dates: end: 20220512
  26. DOXORUBICIN [Suspect]
     Active Substance: DOXORUBICIN
     Indication: B-cell lymphoma
     Dosage: TIME INTERVAL: CYCLICAL: UNK UNK, CYCLIC
     Route: 065
     Dates: end: 20220512
  27. DOXORUBICIN [Suspect]
     Active Substance: DOXORUBICIN
     Indication: B-cell lymphoma
     Dosage: UNK, CYCLIC (6 CYCLE, RCHOP CHEMO - DOSE) UNK
     Route: 065
     Dates: end: 20220512
  28. DOXORUBICIN [Suspect]
     Active Substance: DOXORUBICIN
     Indication: B-cell lymphoma
     Dosage: UNK, CYCLIC (6 CYCLE, RCHOP CHEMO - DOSE), RCHOP CHEMO - DOSE AND EXACT ROUTE NOT KNOWN.
     Route: 065
     Dates: end: 20220512
  29. DOXORUBICIN [Suspect]
     Active Substance: DOXORUBICIN
     Indication: B-cell lymphoma
     Dosage: RCHOP CHEMO
     Route: 065
     Dates: end: 20220512
  30. DOXORUBICIN [Suspect]
     Active Substance: DOXORUBICIN
     Indication: B-cell lymphoma
     Dosage: TIME INTERVAL: CYCLICAL: DOSAGE FORM: INJECTION, CYCLIC (6 CYCLE, RCHOP CHEMO - DOSE), RCHOP CHEM...
     Route: 065
     Dates: end: 20220512
  31. DOXORUBICIN [Suspect]
     Active Substance: DOXORUBICIN
     Indication: B-cell lymphoma
     Dosage: TIME INTERVAL: CYCLICAL: UNK, CYCLIC (6 CYCLE, RCHOP CHEMO - DOSE)
     Route: 065
     Dates: end: 20220512
  32. DOXORUBICIN [Suspect]
     Active Substance: DOXORUBICIN
     Indication: B-cell lymphoma
     Dosage: UNK, CYCLIC (6 CYCLE, RCHOP CHEMO - DOSE)
     Route: 065
     Dates: end: 20220512
  33. DOXORUBICIN [Suspect]
     Active Substance: DOXORUBICIN
     Indication: B-cell lymphoma
     Dosage: UNK, CYCLIC (6 CYCLE, RCHOP CHEMO - DOSE)
     Route: 065
     Dates: end: 20220512
  34. DOXORUBICIN [Suspect]
     Active Substance: DOXORUBICIN
     Indication: B-cell lymphoma
     Dosage: UNK, CYCLIC (6 CYCLE, RCHOP CHEMO - DOSE) DOSAGE FORM: INJECTION
     Route: 065
     Dates: end: 20220512
  35. DOXORUBICIN [Suspect]
     Active Substance: DOXORUBICIN
     Indication: B-cell lymphoma
     Dosage: MOST RECENT DOSE ON 12/MAY/2022
     Route: 065
     Dates: end: 20220512
  36. DOXORUBICIN [Suspect]
     Active Substance: DOXORUBICIN
     Indication: B-cell lymphoma
     Dosage: RCHOP CHEMO
     Route: 065
     Dates: end: 20220512
  37. DOXORUBICIN [Suspect]
     Active Substance: DOXORUBICIN
     Indication: B-cell lymphoma
     Dosage: TIME INTERVAL: CYCLICAL: UNK UNK, CYCLIC (6 CYCLE RCHOP CHEMO- DOSE AND ROUTE UNKNOWN 12/MAY/2022.)
     Route: 065
     Dates: end: 20220512
  38. DOXORUBICIN [Suspect]
     Active Substance: DOXORUBICIN
     Indication: B-cell lymphoma
     Dosage: DOSE:1, CYCLE/ RCHOP CHEMO - DOSE AND EXACT ROUTE NOT KNOWN CYCLIC (6 CYCLE, RCHOP CHEMO - DOSE, ...
     Route: 065
     Dates: end: 20220512
  39. DOXORUBICIN [Suspect]
     Active Substance: DOXORUBICIN
     Indication: B-cell lymphoma
     Dosage: TIME INTERVAL: CYCLICAL: UNK (RCHOP CHEMO - DOSE AND EXACT ROUTE NOT KNOWN)
     Route: 065
     Dates: end: 20220512
  40. DOXORUBICIN [Suspect]
     Active Substance: DOXORUBICIN
     Indication: B-cell lymphoma
     Dosage: TIME INTERVAL: CYCLICAL: RCHOP CHEMO - DOSE AND EXACT ROUTE NOT KNOWN. CYCLIC (6 CYCLE, RCHOP CHE...
     Route: 065
     Dates: end: 20220512
  41. PREDNISOLONE [Suspect]
     Active Substance: PREDNISOLONE
     Indication: B-cell lymphoma
     Dosage: UNK UNK, CYCLIC (6 CYCLE, RCHOP CHEMO - DOSE, GASTRO RESISTANT)
     Route: 065
     Dates: end: 20220512
  42. PREDNISOLONE [Suspect]
     Active Substance: PREDNISOLONE
     Indication: B-cell lymphoma
     Dosage: UNK (RCHOP CHEMO, 6 CYCLES- DOSE AND EXACT ROUTE NOT KNOWN)
     Route: 065
     Dates: end: 20220512
  43. PREDNISOLONE [Suspect]
     Active Substance: PREDNISOLONE
     Indication: B-cell lymphoma
     Dosage: UNK UNK, CYCLIC (6 CYCLE, RCHOP CHEMO - DOSE)
     Route: 065
     Dates: end: 20220512
  44. PREDNISOLONE [Suspect]
     Active Substance: PREDNISOLONE
     Indication: B-cell lymphoma
     Dosage: RCHOP CHEMO, MOST RECENT DOSE ON 12-MAY-2022, ADDITIONAL INFORMATION ON DRUG (FREE TEXT): RCHOP C...
     Route: 065
     Dates: end: 20220512
  45. PREDNISOLONE [Suspect]
     Active Substance: PREDNISOLONE
     Indication: B-cell lymphoma
     Dosage: UNK UNK, CYCLIC (6 CYCLE, RCHOP CHEMO - DOSE)
     Route: 065
     Dates: end: 20220512
  46. PREDNISOLONE [Suspect]
     Active Substance: PREDNISOLONE
     Indication: B-cell lymphoma
     Dosage: UNK UNK, CYCLIC (6 CYCLE, RCHOP CHEMO - DOSE)
     Route: 065
     Dates: end: 20220512
  47. PREDNISOLONE [Suspect]
     Active Substance: PREDNISOLONE
     Indication: B-cell lymphoma
     Dosage: UNK, CYCLIC (6 CYCLE, RCHOP CHEMO - DOSE, GASTRO RESISTANT)
     Route: 065
     Dates: end: 20220512
  48. PREDNISOLONE [Suspect]
     Active Substance: PREDNISOLONE
     Indication: B-cell lymphoma
     Dosage: CYCLIC,6 CYCLE, RCHOP CHEMO-DOSE,GASTRO RESISTANT (RCHOP CHEMO - DOSE AND EXACT ROUTE NOT KNOWN.)
     Route: 042
     Dates: end: 20220512
  49. PREDNISOLONE [Suspect]
     Active Substance: PREDNISOLONE
     Indication: B-cell lymphoma
     Dosage: RCHOP CHEMO
     Route: 065
     Dates: end: 20220512
  50. PREDNISOLONE [Suspect]
     Active Substance: PREDNISOLONE
     Indication: B-cell lymphoma
     Dosage: UNK. UNK, CYCLIC
     Route: 065
     Dates: end: 20220512
  51. PREDNISOLONE [Suspect]
     Active Substance: PREDNISOLONE
     Indication: B-cell lymphoma
     Dosage: UNK RCHOP CHEMO - DOSE AND EXACT ROUTE NOT KNOWN, ADDITIONAL INFORMATION ON DRUG (FREE TEXT): RCH...
     Route: 065
     Dates: end: 20220512
  52. PREDNISOLONE [Suspect]
     Active Substance: PREDNISOLONE
     Indication: B-cell lymphoma
     Dosage: UNK UNK, CYCLIC (6 CYCLE, RCHOP CHEMO - DOSE AND EXACT ROUTE NOT KNOWN)
     Route: 065
     Dates: end: 20220512
  53. PREDNISOLONE [Suspect]
     Active Substance: PREDNISOLONE
     Indication: B-cell lymphoma
     Dosage: UNK (RCHOP CHEMO - DOSE AND EXACT R)
     Route: 065
  54. PREDNISOLONE [Suspect]
     Active Substance: PREDNISOLONE
     Indication: B-cell lymphoma
     Dosage: 6 CYCLE, RCHOP CHEMO - DOSE, GASTRO RESISTANT
     Route: 065
     Dates: end: 20220512
  55. PREDNISOLONE [Suspect]
     Active Substance: PREDNISOLONE
     Indication: B-cell lymphoma
     Dosage: UNK UNK, CYCLIC (6 CYCLE, RCHOP CHEMO - DOSE AND EXACT ROUTE NOT KNOWN, CYCLIC (6 CYCLE,
     Route: 065
     Dates: end: 20220512
  56. PREDNISOLONE [Suspect]
     Active Substance: PREDNISOLONE
     Indication: B-cell lymphoma
     Dosage: UNK, CYCLIC (1 CYCLICAL, 6 CYCLE, RCHOP CHEMO-DOSE, GASTRO)
     Route: 042
  57. PREDNISOLONE [Suspect]
     Active Substance: PREDNISOLONE
     Indication: B-cell lymphoma
     Dosage: RCHOP CHEMO - DOSE AND EXACT ROUTE NOT KNOWNCYCLIC (6 CYCLE, RCHOP CHEMO - DOSE, GASTRO RESISTANT
     Route: 065
     Dates: end: 20220512
  58. PREDNISOLONE [Suspect]
     Active Substance: PREDNISOLONE
     Indication: B-cell lymphoma
     Dosage: CYCLIC (6 CYCLE, RCHOP CHEMO - DOSE)
     Route: 065
     Dates: end: 20220512
  59. RITUXIMAB [Suspect]
     Active Substance: RITUXIMAB
     Indication: B-cell lymphoma
     Dosage: UNK, CYCLIC (6 CYCLE, RCHOP CHEMO - DOSE); INTRAVENOUS DRIP
     Route: 041
     Dates: end: 20220512
  60. RITUXIMAB [Suspect]
     Active Substance: RITUXIMAB
     Indication: B-cell lymphoma
     Dosage: UNK (RCHOP CHEMO); ; ADDITIONAL INFO: RCHOP CHEMO - DOSE AND EXACT ROUTE NOT KNOWN.
     Route: 065
     Dates: end: 20220512
  61. RITUXIMAB [Suspect]
     Active Substance: RITUXIMAB
     Indication: B-cell lymphoma
     Dosage: RCHOP CHEMO;
     Route: 065
     Dates: end: 20220512
  62. RITUXIMAB [Suspect]
     Active Substance: RITUXIMAB
     Indication: B-cell lymphoma
     Dosage: UNK, CYCLIC (6 CYCLE, RCHOP CHEMO - DOSE); ; ADDITIONAL INFO: RCHOP CHEMO - DOSE AND EXACT ROUTE ...
     Route: 065
     Dates: end: 20220512
  63. RITUXIMAB [Suspect]
     Active Substance: RITUXIMAB
     Indication: B-cell lymphoma
     Dosage: UNK, CYCLIC (6 CYCLE, RCHOP CHEMO - DOSE): INTRAVENOUS DRIP, RCHOP CHEMO - DOSE AND EXACT ROUTE NOT
     Route: 041
     Dates: end: 20220512
  64. RITUXIMAB [Suspect]
     Active Substance: RITUXIMAB
     Indication: B-cell lymphoma
     Dosage: DOSE:1, CYCLE /RCHOP CHEMO - DOSE AND EXACT ROUTE NOT KNOWN. UNK, CYCLIC (6 CYCLE, RCHOP CHEMO - ...
     Route: 042
     Dates: end: 20220512
  65. RITUXIMAB [Suspect]
     Active Substance: RITUXIMAB
     Indication: B-cell lymphoma
     Dosage: UNK; ; ADDITIONAL INFO: RCHOP CHEMO - DOSE AND EXACT ROUTE NOT KNOWN.
     Route: 065
     Dates: end: 20220512
  66. RITUXIMAB [Suspect]
     Active Substance: RITUXIMAB
     Indication: B-cell lymphoma
     Dosage: UNK; ; ADDITIONAL INFO: RCHOP CHEMO - DOSE AND EXACT ROUTE NOT KNOWN.
     Route: 065
     Dates: end: 20220512
  67. RITUXIMAB [Suspect]
     Active Substance: RITUXIMAB
     Indication: B-cell lymphoma
     Dosage: RCHOP CHEMO - DOSE AND EXACT ROUTE NOT KNOWN.; ;ADDITIONAL INFO: RCHOP CHEMO - DOSE AND EXACT ROU...
     Route: 065
     Dates: end: 20220512
  68. RITUXIMAB [Suspect]
     Active Substance: RITUXIMAB
     Indication: B-cell lymphoma
     Dosage: MOST RECENT DOSE ON 12/MAY/2022; ; ADDITIONAL INFO: RCHOP CHEMO - DOSE AND EXACT ROUTE NOT KNOWN.
     Route: 065
     Dates: end: 20220512
  69. RITUXIMAB [Suspect]
     Active Substance: RITUXIMAB
     Indication: B-cell lymphoma
     Dosage: RCHOP CHEMO - DOSE AND EXACT ROUTE NOT KNOWN.
     Route: 042
     Dates: end: 20220512
  70. RITUXIMAB [Suspect]
     Active Substance: RITUXIMAB
     Indication: B-cell lymphoma
     Dosage: CYCLIC (MOST RECENT DOSE ON (6 CYCLE, RCHOP CHEMO - DOSE)
     Route: 042
     Dates: end: 20220512
  71. RITUXIMAB [Suspect]
     Active Substance: RITUXIMAB
     Indication: B-cell lymphoma
     Dosage: UNK, CYCLIC (6 CYCLE, RCHOP CHEMO - DOSE)
     Route: 042
     Dates: end: 20220512
  72. RITUXIMAB [Suspect]
     Active Substance: RITUXIMAB
     Indication: B-cell lymphoma
     Dosage: UNK, CYCLIC (6 CYCLE, RCHOP CHEMO - DOSE)
     Route: 042
     Dates: end: 20220512
  73. RITUXIMAB [Suspect]
     Active Substance: RITUXIMAB
     Indication: B-cell lymphoma
     Dosage: RITUXIMAB
     Route: 065
     Dates: end: 20220512
  74. RITUXIMAB [Suspect]
     Active Substance: RITUXIMAB
     Indication: B-cell lymphoma
     Dosage: MOST RECENT DOSE ON 12/MAY/2022
     Route: 065
     Dates: end: 20220512
  75. RITUXIMAB [Suspect]
     Active Substance: RITUXIMAB
     Indication: B-cell lymphoma
     Dosage: UNK (RCHOP CHEMO - DOSE AND EX)
     Route: 042
     Dates: end: 20220512
  76. RITUXIMAB [Suspect]
     Active Substance: RITUXIMAB
     Indication: B-cell lymphoma
     Dosage: UNK, CYCLIC (6 CYCLE, RCHOP CHEMO - DOSE)
     Route: 042
     Dates: end: 20220512
  77. RITUXIMAB [Suspect]
     Active Substance: RITUXIMAB
     Indication: B-cell lymphoma
     Dosage: UNK
     Route: 065
  78. RITUXIMAB [Suspect]
     Active Substance: RITUXIMAB
     Indication: B-cell lymphoma
     Dosage: TIME INTERVAL: CYCLICAL: UNK UNK, CYCLIC
     Route: 042
     Dates: end: 20220512
  79. RITUXIMAB [Suspect]
     Active Substance: RITUXIMAB
     Indication: B-cell lymphoma
     Dosage: UNK (MOST RECENT DOSE ON 12/MAY/2022)
     Route: 065
     Dates: end: 20220512
  80. RITUXIMAB [Suspect]
     Active Substance: RITUXIMAB
     Indication: B-cell lymphoma
     Dosage: TIME INTERVAL: CYCLICAL: CYCLIC (6 CYCLE, RCHOP CHEMO - DOSE); INTRAVENOUS DRIP
     Route: 041
     Dates: end: 20220512
  81. RITUXIMAB [Suspect]
     Active Substance: RITUXIMAB
     Indication: B-cell lymphoma
     Dosage: RCHOP CHEMO - DOSE AND EXACT ROUTE NOT KNOWN.
     Route: 065
     Dates: end: 20220512
  82. RITUXIMAB [Suspect]
     Active Substance: RITUXIMAB
     Indication: B-cell lymphoma
     Dosage: UNK, CYCLIC (6 CYCLE, RCHOP CHEMO - DOSE); ; ADDITIONAL INFO: RCHOP CHEMO - DOSE AND EXACT ROUTE ...
     Route: 065
     Dates: end: 20220512
  83. RITUXIMAB [Suspect]
     Active Substance: RITUXIMAB
     Indication: B-cell lymphoma
     Dosage: UNK (MOST RECENT DOSE ON 12 MAY 2022)
     Route: 065
     Dates: end: 20220512
  84. RITUXIMAB [Suspect]
     Active Substance: RITUXIMAB
     Indication: B-cell lymphoma
     Dosage: TIME INTERVAL: CYCLICAL: RCHOP CHEMO - DOSE AND EXACT ROUTE NOT KNOWN.UNK, CYCLIC (6 CYCLE, RCHOP...
     Route: 042
     Dates: end: 20220512
  85. RITUXIMAB [Suspect]
     Active Substance: RITUXIMAB
     Indication: B-cell lymphoma
     Dosage: UNK (RCHOP CHEMO - DOSE AND EXACT ROUTE NOT KNOWN.)
     Route: 065
     Dates: end: 20220512
  86. RITUXIMAB [Suspect]
     Active Substance: RITUXIMAB
     Indication: B-cell lymphoma
     Dosage: CYCLIC (RCHOP CHEMO - DOSE AND EXACT ROUTE NOT KNOWN.UNK, CYCLIC (6 CYCLE, RCHOP CHEMO - DOSE); ;...
     Route: 042
     Dates: end: 20220512
  87. RITUXIMAB [Suspect]
     Active Substance: RITUXIMAB
     Indication: B-cell lymphoma
     Dosage: RCHOP CHEMO - DOSE AND EXACT ROUTE NOT KNOWN. UNK, CYCLIC (6 CYCLE, RCHOP CHEMO - DOSE), MOST REC...
     Route: 042
     Dates: end: 20220512
  88. RITUXIMAB [Suspect]
     Active Substance: RITUXIMAB
     Indication: B-cell lymphoma
     Dosage: RCHOP CHEMO - DOSE AND EXACT ROUTE NOT KNOWN. UNK, CYCLIC (6 CYCLE, RCHOP CHEMO - DOSE)
     Route: 041
     Dates: end: 20220512
  89. RITUXIMAB [Suspect]
     Active Substance: RITUXIMAB
     Indication: B-cell lymphoma
     Dosage: TIME INTERVAL: CYCLICAL: RCHOP CHEMO - DOSE AND EXACT ROUTE NOT KNOWN. UNK, CYCLIC (6 CYCLE, RCHO...
     Route: 042
     Dates: end: 20220512
  90. RITUXIMAB [Suspect]
     Active Substance: RITUXIMAB
     Indication: B-cell lymphoma
     Dosage: RITUXIMAB; ADDITIONAL INFO: RCHOP CHEMO - DOSE AND EXACT ROUTE NOT KNOWN.
     Route: 065
     Dates: end: 20220512
  91. VINCRISTINE [Suspect]
     Active Substance: VINCRISTINE
     Indication: B-cell lymphoma
     Dosage: RCHOP CHEMO; ADDITIONAL INFO: RCHOP CHEMO - DOSE AND EXACT ROUTE NOT KNOWN.
     Route: 065
     Dates: end: 20220512
  92. VINCRISTINE [Suspect]
     Active Substance: VINCRISTINE
     Indication: B-cell lymphoma
     Dosage: CYCLIC (6 CYCLE, RCHOP CHEMO - DOSE, GASTRO RESISTANT); ADDITIONAL INFO: RCHOP CHEMO - DOSE AND E...
     Route: 065
     Dates: end: 20220512
  93. VINCRISTINE [Suspect]
     Active Substance: VINCRISTINE
     Indication: B-cell lymphoma
     Dosage: RCHOP CHEMO, MOST RECENT DOSE ON 12/MAY/2022; ADDITIONAL INFO: RCHOP CHEMO - DOSE AND EXACT ROUTE...
     Route: 065
     Dates: end: 20220512
  94. VINCRISTINE [Suspect]
     Active Substance: VINCRISTINE
     Indication: B-cell lymphoma
     Dosage: DOSE:1, CYCLE/ RCHOP CHEMO - DOSE AND EXACT ROUTE NOT KNOWN CYCLIC (6 CYCLE, RCHOP CHEMO - DOSE, ...
     Route: 065
     Dates: end: 20220512
  95. VINCRISTINE [Suspect]
     Active Substance: VINCRISTINE
     Indication: B-cell lymphoma
     Dosage: UNK (RCHOP CHEMO - DOSE AND EXACT ROUTE NOT KNOWN.); ADDITIONAL INFO: RCHOP CHEMO - DOSE AND EXAC...
     Route: 065
     Dates: end: 20220512
  96. VINCRISTINE [Suspect]
     Active Substance: VINCRISTINE
     Indication: B-cell lymphoma
     Dosage: RCHOP CHEMO; ADDITIONAL INFO: RCHOP CHEMO - DOSE AND EXACT ROUTE NOT KNOWN.
     Route: 065
     Dates: end: 20220512
  97. VINCRISTINE [Suspect]
     Active Substance: VINCRISTINE
     Indication: B-cell lymphoma
     Dosage: UNK, CYCLIC (6 CYCLE, RCHOP CHEMO - DOSE, GASTRO RESISTANT), MOST RECENT DOSE ON 12/MAY/2022; ADD...
     Route: 065
     Dates: end: 20220512
  98. VINCRISTINE [Suspect]
     Active Substance: VINCRISTINE
     Indication: B-cell lymphoma
     Dosage: UNK, CYCLIC (6 CYCLE, RCHOP CHEMO - DOSE, GASTRO RESISTANT), MOST RECENT DOSE ON 12/MAY/2022; ADD...
     Route: 065
     Dates: end: 20220512
  99. VINCRISTINE [Suspect]
     Active Substance: VINCRISTINE
     Indication: B-cell lymphoma
     Dosage: UNK (RCHOP CHEMO - DOSE AND EXACT ROUTE NOT KNOWN. CYCLIC (6 CYCLE, RCHOP CHEMO - DOSE, GASTRO RE...
     Route: 065
     Dates: end: 20220512
  100. VINCRISTINE [Suspect]
     Active Substance: VINCRISTINE
     Indication: B-cell lymphoma
     Dosage: UNK, CYCLIC (6 CYCLE, RCHOP CHEMO - DOSE, GASTRO RESISTANT);
     Route: 065
     Dates: end: 20220512
  101. VINCRISTINE [Suspect]
     Active Substance: VINCRISTINE
     Indication: B-cell lymphoma
     Dosage: UNK, CYCLIC (6 CYCLE, RCHOP CHEMO - DOSE, GASTRO RESISTANT), MOST RECENT DOSE ON 12/MAY/2022; ; A...
     Route: 065
     Dates: end: 20220512
  102. VINCRISTINE [Suspect]
     Active Substance: VINCRISTINE
     Indication: B-cell lymphoma
     Dosage: UNK, CYCLIC (6 CYCLE, RCHOP CHEMO - DOSE, GASTRO RESISTANT);
     Route: 065
     Dates: end: 20220512
  103. VINCRISTINE [Suspect]
     Active Substance: VINCRISTINE
     Indication: B-cell lymphoma
     Dosage: RCHOP CHEMO; ADDITIONAL INFO: RCHOP CHEMO - DOSE AND EXACT ROUTE NOT KNOWN.
     Route: 065
     Dates: end: 20220512
  104. VINCRISTINE [Suspect]
     Active Substance: VINCRISTINE
     Indication: B-cell lymphoma
     Dosage: UNK, CYCLIC (6 CYCLE, RCHOP CHEMO - DOSE, GASTRO RESISTANT), MOST RECENT DOSE ON 12/MAY/2022; ; A...
     Route: 065
     Dates: end: 20220512
  105. VINCRISTINE [Suspect]
     Active Substance: VINCRISTINE
     Indication: B-cell lymphoma
     Dosage: RCHOP CHEMO - DOSE AND EXACT ROUTE NOT KNOWN; ADDITIONAL INFO: RCHOP CHEMO - DOSE AND EXACT ROUTE...
     Route: 065
     Dates: end: 20220512
  106. VINCRISTINE [Suspect]
     Active Substance: VINCRISTINE
     Indication: B-cell lymphoma
     Dosage: RCHOP CHEMO - DOSE AND EXACT ROUTE NOT KNOWN; ADDITIONAL INFO: RCHOP CHEMO - DOSE AND EXACT ROUTE...
     Route: 065
     Dates: end: 20220512
  107. VINCRISTINE [Suspect]
     Active Substance: VINCRISTINE
     Indication: B-cell lymphoma
     Dosage: TIME INTERVAL: CYCLICAL: RCHOP CHEMO - DOSE AND EXACT ROUTE NOT KNOWN.CYCLIC (6 CYCLE, RCHOP CHEM...
     Route: 065
     Dates: end: 20220512
  108. VINCRISTINE [Suspect]
     Active Substance: VINCRISTINE
     Indication: B-cell lymphoma
     Dosage: TIME INTERVAL: CYCLICAL: RCHOP CHEMO - DOSE AND EXACT ROUTE NOT KNOWN. CYCLIC (6 CYCLE, RCHOP CHE...
     Route: 065
     Dates: end: 20220512
  109. VINCRISTINE [Suspect]
     Active Substance: VINCRISTINE
     Indication: B-cell lymphoma
     Dosage: RCHOP CHEMO - DOSE AND EXACT ROUTE NOT KNOWN.
     Route: 065
     Dates: end: 20220512
  110. VINCRISTINE [Suspect]
     Active Substance: VINCRISTINE
     Indication: B-cell lymphoma
     Dosage: DOSE:1, CYCLE/ RCHOP CHEMO - DOSE AND EXACT ROUTE NOT KNOWN CYCLIC (6 CYCLE, RCHOP CHEMO - DOSE, ...
     Route: 065
     Dates: end: 20220512
  111. VINCRISTINE [Suspect]
     Active Substance: VINCRISTINE
     Indication: B-cell lymphoma
     Dosage: UNK (RCHOP CHEMO - DOSE AND EXACT ROUTE NOT KNOWN.)
     Route: 065
     Dates: end: 20220512
  112. VINCRISTINE [Suspect]
     Active Substance: VINCRISTINE
     Indication: B-cell lymphoma
     Dosage: TIME INTERVAL: CYCLICAL: UNK, CYCLIC (6 CYCLE, RCHOP CHEMO - DOSE, GASTRORESITANT), RCHOP CHEMO -...
     Route: 065
     Dates: end: 20220512
  113. VINCRISTINE [Suspect]
     Active Substance: VINCRISTINE
     Indication: B-cell lymphoma
     Dosage: TIME INTERVAL: CYCLICAL: CYCLIC (6 CYCLE, RCHOP CHEMO - DOSE, GASTRO RESISTANT)
     Route: 065
     Dates: end: 20220512
  114. VINCRISTINE [Suspect]
     Active Substance: VINCRISTINE
     Indication: B-cell lymphoma
     Dosage: TIME INTERVAL: CYCLICAL: RCHOP CHEMO - DOSE AND EXACT ROUTE NOT KNOWN. CYCLIC (6 CYCLE, RCHOP CHE...
     Route: 065
     Dates: end: 20220512
  115. VINCRISTINE [Suspect]
     Active Substance: VINCRISTINE
     Indication: B-cell lymphoma
     Dosage: UNK, CYCLIC (6 CYCLE, RCHOP CHEMO - DOSE, GASTRO RESISTANT)
     Route: 065
     Dates: end: 20220512
  116. VINCRISTINE [Suspect]
     Active Substance: VINCRISTINE
     Indication: B-cell lymphoma
     Dosage: TIME INTERVAL: CYCLICAL: UNK, CYCLIC (6 CYCLE, RCHOP CHEMO - DOSE, GASTRORESITANT), RCHOP CHEMO -...
     Route: 065
     Dates: end: 20220512
  117. VINCRISTINE [Suspect]
     Active Substance: VINCRISTINE
     Indication: B-cell lymphoma
     Dosage: UNK, CYCLIC (6 CYCLE, RCHOP CHEMO - DOSE, GASTRO RESISTANT)
     Route: 065
     Dates: end: 20220512
  118. VINCRISTINE [Suspect]
     Active Substance: VINCRISTINE
     Indication: B-cell lymphoma
     Dosage: RCHOP CHEMO, MOST RECENT DOSE ON 12/MAY/2022
     Route: 065
     Dates: end: 20220512
  119. VINCRISTINE [Suspect]
     Active Substance: VINCRISTINE
     Indication: B-cell lymphoma
     Dosage: TIME INTERVAL: CYCLICAL: UNK UNK, CYCLIC (6 CYCLE RCHOP CHEMO DOSE, GASTRO RESISTANT MOST RECENT ...
     Route: 065
     Dates: end: 20220512
  120. VINCRISTINE [Suspect]
     Active Substance: VINCRISTINE
     Indication: B-cell lymphoma
     Dosage: RCHOP CHEMO
     Route: 065
     Dates: end: 20220512
  121. VINCRISTINE [Suspect]
     Active Substance: VINCRISTINE
     Indication: B-cell lymphoma
     Dosage: RCHOP CHEMO;
     Route: 065
     Dates: end: 20220512
  122. VINCRISTINE [Suspect]
     Active Substance: VINCRISTINE
     Indication: B-cell lymphoma
     Dosage: UNK, CYCLIC (6 CYCLE, RCHOP CHEMO - DOSE, GASTRO RESISTANT
     Route: 065
     Dates: end: 20220512
  123. PREDNISOLONE [Suspect]
     Active Substance: PREDNISOLONE
     Indication: B-cell lymphoma
     Dosage: UNK, CYCLIC (6 CYCLE, RCHOP CHEMO - DOSE, GASTRO RESISTANT
     Route: 065
     Dates: end: 20220512
  124. PREDNISOLONE [Suspect]
     Active Substance: PREDNISOLONE
     Indication: B-cell lymphoma
     Dosage: UNK (RCHOP CHEMO - DOSE AND EXACT ROUTE NOT KNOWN.)
     Route: 065
     Dates: end: 20220512
  125. PREDNISOLONE [Suspect]
     Active Substance: PREDNISOLONE
     Indication: B-cell lymphoma
     Dosage: RCHOP CHEMO - DOSE AND EXACT ROUTE NOT KNOWN. ADDITIONAL INFO: ROUTE:UNKNOWN ROUTE:UNKNOWN ROUTE:...
     Route: 042
     Dates: end: 20220512
  126. PREDNISOLONE [Suspect]
     Active Substance: PREDNISOLONE
     Indication: B-cell lymphoma
     Dosage: UNK, CYCLIC (6 CYCLE, RCHOP CHEMO - DOSE, GASTRO RESISTANT); ; ADDITIONAL INFO: ROUTE:UNKNOWN ROU...
     Route: 065
     Dates: end: 20220512
  127. PREDNISOLONE [Suspect]
     Active Substance: PREDNISOLONE
     Indication: B-cell lymphoma
     Dosage: RCHOP CHEMO, MOST RECENT DOSE ON 12/MAY/2022
     Route: 065
     Dates: end: 20220512
  128. PREDNISOLONE [Suspect]
     Active Substance: PREDNISOLONE
     Indication: B-cell lymphoma
     Dosage: ADDITIONAL INFO: ROUTE:UNKNOWN ROUTE:UNKNOWN ROUTE:UNKNOWN ROUTE:UNKNOWN ROUTE:UNKNOWNRCHOP CHEMO...
     Route: 065
     Dates: end: 20220512
  129. PREDNISOLONE [Suspect]
     Active Substance: PREDNISOLONE
     Indication: B-cell lymphoma
     Dosage: UNK RCHOP CHEMO, 6 CYCLES- DOSE AND EXACT ROUTE NOT KNOWN; ; ADDITIONAL INFO: ROUTE:UNKNOWN ROUTE...
     Route: 065
     Dates: end: 20220512
  130. PREDNISOLONE [Suspect]
     Active Substance: PREDNISOLONE
     Indication: B-cell lymphoma
     Dosage: UNK, CYCLIC (6 CYCLE, RCHOP CHEMO - DOSE, GASTRO RESISTANT); ; ADDITIONAL INFO: ROUTE:UNKNOWN ROU...
     Route: 065
     Dates: end: 20220512
  131. PREDNISOLONE [Suspect]
     Active Substance: PREDNISOLONE
     Indication: B-cell lymphoma
     Dosage: RCHOP CHEMO; ADDITIONAL INFO: ROUTE: UNKNOWN ROUTE: UNKNOWN ROUTE: UNKNOWN ROUTE: UNKNOWN ROUTE: ...
     Route: 065
     Dates: end: 20220512
  132. PREDNISOLONE [Suspect]
     Active Substance: PREDNISOLONE
     Indication: B-cell lymphoma
     Dosage: UNK, CYCLIC (6 CYCLE, RCHOP CHEMO - DOSE, GASTRO RESISTANT)
     Route: 065
     Dates: end: 20220512
  133. PREDNISOLONE [Suspect]
     Active Substance: PREDNISOLONE
     Indication: B-cell lymphoma
     Dosage: UNK (RCHOP CHEMO)
     Route: 042
     Dates: end: 20220512
  134. PREDNISOLONE [Suspect]
     Active Substance: PREDNISOLONE
     Indication: B-cell lymphoma
     Dosage: UNK RCHOP CHEMO - DOSE AND EXACT ROUTE NOT KNOWN
     Route: 042
     Dates: end: 20220512
  135. PREDNISOLONE [Suspect]
     Active Substance: PREDNISOLONE
     Indication: B-cell lymphoma
     Dosage: UNK, CYCLIC (6 CYCLE, RCHOP CHEMO - DOSE, GASTRO RESISTANT)
     Route: 042
     Dates: end: 20220512
  136. PREDNISOLONE [Suspect]
     Active Substance: PREDNISOLONE
     Indication: B-cell lymphoma
     Dosage: UNK, CYCLIC (6 CYCLE, RCHOP CHEMO - DOSE, GASTRO RESISTANT)
     Route: 042
     Dates: end: 20220512
  137. PREDNISOLONE [Suspect]
     Active Substance: PREDNISOLONE
     Indication: B-cell lymphoma
     Dosage: UNK RCHOP CHEMO - DOSE AND EXACT ROUTE NOT KNOWN.
     Route: 065
     Dates: end: 20220512
  138. PREDNISOLONE [Suspect]
     Active Substance: PREDNISOLONE
     Indication: B-cell lymphoma
     Dosage: UNK (RCHOP CHEMO - DOSE AND EXACT ROUTE NOT KNOWN)
     Route: 042
     Dates: end: 20220512
  139. PREDNISOLONE [Suspect]
     Active Substance: PREDNISOLONE
     Indication: B-cell lymphoma
     Dosage: UNK UNK, CYCLIC (6 CYCLE, RCHOP CHEMO - DOSE, GASTRO RESISTANT)
     Route: 065
     Dates: end: 20220512
  140. PREDNISOLONE [Suspect]
     Active Substance: PREDNISOLONE
     Indication: B-cell lymphoma
     Dosage: RCHOP CHEMO - DOSE AND EXACT ROUTE NOT KNOWN CYCLIC (6 CYCLE, RCHOP CHEMO - DOSE, GASTRO RESISTAN...
     Route: 065
     Dates: end: 20220512
  141. PREDNISOLONE [Suspect]
     Active Substance: PREDNISOLONE
     Indication: B-cell lymphoma
     Dosage: TIME INTERVAL: CYCLICAL: UNK UNK, CYCLIC (6 CYCLE, RCHOP CHEMO - DOSE, GASTRO RESISTANT)
     Route: 065
     Dates: end: 20220512
  142. PREDNISOLONE [Suspect]
     Active Substance: PREDNISOLONE
     Indication: B-cell lymphoma
     Dosage: RCHOP CHEMO - DOSE AND EXACT ROUTE NOT KNOWN.
     Route: 065
     Dates: end: 20220512
  143. PREDNISOLONE [Suspect]
     Active Substance: PREDNISOLONE
     Indication: B-cell lymphoma
     Dosage: RCHOP CHEMO - DOSE AND EXACT ROUTE NOT KNOWN CYCLIC (6 CYCLE, RCHOP CHEMO - DOSE, GASTRO RESISTANT)
     Route: 065
     Dates: end: 20220512
  144. PREDNISOLONE [Suspect]
     Active Substance: PREDNISOLONE
     Indication: B-cell lymphoma
     Dosage: TIME INTERVAL: CYCLICAL: RCHOP CHEMO - DOSE AND EXACT ROUTE NOT KNOWN, CYCLIC (6 CYCLE, RCHOP CHE...
     Route: 042
     Dates: end: 20220512
  145. PREDNISOLONE [Suspect]
     Active Substance: PREDNISOLONE
     Indication: B-cell lymphoma
     Dosage: TIME INTERVAL: CYCLICAL: UNK UNK, CYCLIC (6 CYCLE, RCHOP CHEMO - DOSE, GASTRO RESISTANT)
     Route: 065
     Dates: end: 20220512
  146. PREDNISOLONE [Suspect]
     Active Substance: PREDNISOLONE
     Indication: B-cell lymphoma
     Dosage: DOSE:1, CYCLE/ RCHOP CHEMO - DOSE AND EXACT ROUTE NOT KNOWN CYCLIC (6 CYCLE, RCHOP CHEMO - DOSE, ...
     Route: 065
     Dates: end: 20220512
  147. PREDNISOLONE [Suspect]
     Active Substance: PREDNISOLONE
     Indication: B-cell lymphoma
     Dosage: UNK UNK, CYCLIC (6 CYCLE, RCHOP CHEMO - DOSE, GASTRO RESISTANT)
     Route: 065
     Dates: end: 20220512
  148. DOXORUBICIN [Suspect]
     Active Substance: DOXORUBICIN
     Indication: B-cell lymphoma
     Dosage: UNK, CYCLIC (6 CYCLE, RCHOP CHEMO - DOSE) DOSAGE FORM: INJECTION)
     Route: 065
  149. DOXORUBICIN [Suspect]
     Active Substance: DOXORUBICIN
     Indication: B-cell lymphoma
     Dosage: 1 CYCLICAL, CYCLIC (6 CYCLE, RCHOP CHEMO - DOSE) RCHOP CHEMO - DOSE AND EXACT ROUTE NOT KNOWN
     Route: 065
     Dates: end: 20220512
  150. DOXORUBICIN [Suspect]
     Active Substance: DOXORUBICIN
     Indication: B-cell lymphoma
     Dosage: UNK (RCHOP CHEMO - DOSE AND EXACT ROUTE NOT KNOWN)
     Route: 065
  151. DOXORUBICIN [Suspect]
     Active Substance: DOXORUBICIN
     Indication: B-cell lymphoma
     Dosage: UNK, CYCLIC
     Route: 065
  152. DOXORUBICIN [Suspect]
     Active Substance: DOXORUBICIN
     Indication: B-cell lymphoma
     Dosage: UNK UNK, (DOSE:1, CYCLE/ RCHOP CHEMO - DOSE AND EXACT ROUTE NOT KNOWN CYCLIC (6 CYCLE, RCHOP CHEMO -
     Route: 065
  153. DOXORUBICIN [Suspect]
     Active Substance: DOXORUBICIN
     Indication: B-cell lymphoma
     Dosage: UNK (MOST RECENT DOSE ON 12/MAY/2022)
     Route: 065
  154. DOXORUBICIN [Suspect]
     Active Substance: DOXORUBICIN
     Indication: B-cell lymphoma
     Dosage: UNK, CYCLIC (6 CYCLE, RCHOP CHEMO - DOSE)
     Route: 065
  155. DOXORUBICIN [Suspect]
     Active Substance: DOXORUBICIN
     Indication: B-cell lymphoma
     Dosage: UNK, CYCLIC (6 CYCLE RCHOP CHEMO- DOSE AND ROUTE UNKNOWN 12/MAY/2022)
     Route: 065
  156. DOXORUBICIN [Suspect]
     Active Substance: DOXORUBICIN
     Indication: B-cell lymphoma
     Dosage: UNK (RCHOP CHEMO - DOSE AND EXACT ROUTE NOT KNOWN)
     Route: 065
  157. DOXORUBICIN [Suspect]
     Active Substance: DOXORUBICIN
     Indication: B-cell lymphoma
     Dosage: TIME INTERVAL: CYCLICAL: RCHOP CHEMO - DOSE AND EXACT ROUTE NOT KNOWN. UNK, CYCLIC (6 CYCLE, RCHO...
     Route: 065
     Dates: end: 20220512
  158. DOXORUBICIN [Suspect]
     Active Substance: DOXORUBICIN
     Indication: B-cell lymphoma
     Dosage: UNK, CYCLIC (6 CYCLE, RCHOP CHEMO - DOSE)
     Route: 065
  159. DOXORUBICIN [Suspect]
     Active Substance: DOXORUBICIN
     Indication: B-cell lymphoma
     Dosage: UNK (RCHOP CHEMO)
     Route: 065
  160. DOXORUBICIN [Suspect]
     Active Substance: DOXORUBICIN
     Indication: B-cell lymphoma
     Dosage: UNK
     Route: 065
  161. DOXORUBICIN [Suspect]
     Active Substance: DOXORUBICIN
     Indication: B-cell lymphoma
     Dosage: UNK, (6 CYCLE, RCHOP CHEMO - DOSE) DOSAGE FORM: INJECTION)
     Route: 065
  162. DOXORUBICIN [Suspect]
     Active Substance: DOXORUBICIN
     Indication: B-cell lymphoma
     Dosage: DOSAGE FORM: INJECTION, CYCLIC (6 CYCLE, RCHOP CHEMO - DOSE), RCHOP CHEMO - DOSE AND EXACT ROUTE NOT
     Route: 065
  163. PREDNISOLONE [Suspect]
     Active Substance: PREDNISOLONE
     Indication: B-cell lymphoma
     Dosage: TIME INTERVAL: CYCLICAL: RCHOP CHEMO - DOSE AND EXACT ROUTE NOT KNOWN CYCLIC (6 CYCLE, RCHOP CHEM...
     Route: 065
     Dates: end: 20220512
  164. CYCLOPHOSPHAMIDE [Suspect]
     Active Substance: CYCLOPHOSPHAMIDE
     Indication: B-cell lymphoma
     Dosage: TIME INTERVAL: CYCLICAL: UNK, CYCLIC (6 CYCLE, RCHOP CHEMO - DOSE), RCHOP CHEMO - DOSE AND EXACT ...
     Route: 065
     Dates: end: 20220512
  165. CYCLOPHOSPHAMIDE [Suspect]
     Active Substance: CYCLOPHOSPHAMIDE
     Indication: B-cell lymphoma
     Dosage: TIME INTERVAL: CYCLICAL: RCHOP CHEMO - DOSE AND EXACT ROUTE NOT KNOWN CYCLIC (6 CYCLE, RCHOP CHEM...
     Route: 065
     Dates: end: 20220512
  166. CYCLOPHOSPHAMIDE [Suspect]
     Active Substance: CYCLOPHOSPHAMIDE
     Indication: B-cell lymphoma
     Dosage: TIME INTERVAL: CYCLICAL: RCHOP CHEMO - DOSE AND EXACT ROUTE NOT KNOWN CYCLIC (6 CYCLE, RCHOP CHEM...
     Route: 065
     Dates: end: 20220512
  167. CYCLOPHOSPHAMIDE [Suspect]
     Active Substance: CYCLOPHOSPHAMIDE
     Indication: B-cell lymphoma
     Dosage: UNK (RCHOP CHEMO - DOSE AND EXACT ROUTE NOT KNOWN)
     Route: 065
     Dates: end: 20220512
  168. CYCLOPHOSPHAMIDE [Suspect]
     Active Substance: CYCLOPHOSPHAMIDE
     Indication: B-cell lymphoma
     Dosage: UNK, CYCLIC (6 CYCLE, RCHOP CHEMO - DOSE
     Route: 065
     Dates: end: 20220512
  169. CYCLOPHOSPHAMIDE [Suspect]
     Active Substance: CYCLOPHOSPHAMIDE
     Indication: B-cell lymphoma
     Dosage: RCHOP CHEMO
     Route: 065
     Dates: end: 20220512
  170. CYCLOPHOSPHAMIDE [Suspect]
     Active Substance: CYCLOPHOSPHAMIDE
     Indication: B-cell lymphoma
     Dosage: UNK, CYCLIC (6 CYCLE, RCHOP CHEMO - DOSE)
     Route: 065
     Dates: end: 20220512
  171. CYCLOPHOSPHAMIDE [Suspect]
     Active Substance: CYCLOPHOSPHAMIDE
     Indication: B-cell lymphoma
     Dosage: UNK, CYCLIC (6 CYCLE, RCHOP CHEMO - DOSE)
     Route: 065
     Dates: end: 20220512
  172. CYCLOPHOSPHAMIDE [Suspect]
     Active Substance: CYCLOPHOSPHAMIDE
     Indication: B-cell lymphoma
     Dosage: TIME INTERVAL: CYCLICAL: RCHOP CHEMO - DOSE AND EXACT ROUTE NOT KNOWN, CYCLIC (6 CYCLE, RCHOP CHE...
     Route: 065
     Dates: end: 20220512
  173. CYCLOPHOSPHAMIDE [Suspect]
     Active Substance: CYCLOPHOSPHAMIDE
     Indication: B-cell lymphoma
     Dosage: RCHOP CHEMO - DOSE AND EXACT ROUTE NOT KNOWN.; UNK UNK, CYCLIC (6 CYCLE, RCHOP CHEMO - DOSE)
     Route: 065
     Dates: end: 20220512
  174. CYCLOPHOSPHAMIDE [Suspect]
     Active Substance: CYCLOPHOSPHAMIDE
     Indication: B-cell lymphoma
     Dosage: RCHOP CHEMO, MOST RECENT DOSE ON 12/MAY/2022
     Route: 065
  175. CYCLOPHOSPHAMIDE [Suspect]
     Active Substance: CYCLOPHOSPHAMIDE
     Indication: B-cell lymphoma
     Dosage: RCHOP CHEMO;
     Route: 065
     Dates: end: 20220512
  176. CYCLOPHOSPHAMIDE [Suspect]
     Active Substance: CYCLOPHOSPHAMIDE
     Indication: B-cell lymphoma
     Dosage: TIME INTERVAL: CYCLICAL: UNK, CYCLIC (6 CYCLE, RCHOP CHEMO - DOSE), RCHOP CHEMO - DOSE AND EXACT ...
     Route: 065
     Dates: end: 20220512
  177. CYCLOPHOSPHAMIDE [Suspect]
     Active Substance: CYCLOPHOSPHAMIDE
     Indication: B-cell lymphoma
     Dosage: TIME INTERVAL: CYCLICAL: RCHOP CHEMO - DOSE AND EXACT ROUTE NOT KNOWN CYCLIC (6 CYCLE, RCHOP CHEM...
     Route: 065
     Dates: end: 20220512
  178. CYCLOPHOSPHAMIDE [Suspect]
     Active Substance: CYCLOPHOSPHAMIDE
     Indication: B-cell lymphoma
     Dosage: DOSE 1, CYCLE/RCHOP CHEMO - DOSE AND EXACT ROUTE NOT KNOWN CYCLIC (6 CYCLE, RCHOP CHEMO - DOSE)
     Route: 065
     Dates: end: 20220512
  179. CYCLOPHOSPHAMIDE [Suspect]
     Active Substance: CYCLOPHOSPHAMIDE
     Indication: B-cell lymphoma
     Dosage: UNK, CYCLIC (6 CYCLE, RCHOP CHEMO - DOSE)
     Route: 065
     Dates: end: 20220512
  180. CYCLOPHOSPHAMIDE [Suspect]
     Active Substance: CYCLOPHOSPHAMIDE
     Indication: B-cell lymphoma
     Dosage: TIME INTERVAL: CYCLICAL: UNK UNK, CYCLIC (RCHOP CHEMO, MOST RECENT DOSE ON 12 MAY 2022); RCHOP CH...
     Route: 065
     Dates: end: 20220512
  181. CYCLOPHOSPHAMIDE [Suspect]
     Active Substance: CYCLOPHOSPHAMIDE
     Indication: B-cell lymphoma
     Dosage: RCHOP CHEMO - DOSE AND EXACT ROUTE NOT KNOWN.; UNK UNK, CYCLIC (RCHOP CHEMO)
     Route: 065
     Dates: end: 20220512
  182. CYCLOPHOSPHAMIDE [Suspect]
     Active Substance: CYCLOPHOSPHAMIDE
     Indication: B-cell lymphoma
     Dosage: RCHOP CHEMO - DOSE AND EXACT ROUTE NOT KNOWN.; UNK UNK, CYCLIC (RCHOP CHEMO - DOSE AND EXACT ROUT...
     Route: 065
     Dates: end: 20220512
  183. CYCLOPHOSPHAMIDE [Suspect]
     Active Substance: CYCLOPHOSPHAMIDE
     Indication: B-cell lymphoma
     Dosage: RCHOP CHEMO - DOSE AND EXACT ROUTE NOT KNOWN; UNK UNK, CYCLIC (6 CYCLE, RCHOP CHEMO - DOSE)
     Route: 065
     Dates: end: 20220512
  184. CYCLOPHOSPHAMIDE [Suspect]
     Active Substance: CYCLOPHOSPHAMIDE
     Indication: B-cell lymphoma
     Dosage: RCHOP CHEMO - DOSE AND EXACT ROUTE NOT KNOWN.; UNK UNK, CYCLIC (6 CYCLE, RCHOP CHEMO - DOSE)
     Route: 065
     Dates: end: 20220512
  185. CYCLOPHOSPHAMIDE [Suspect]
     Active Substance: CYCLOPHOSPHAMIDE
     Indication: B-cell lymphoma
     Dosage: RCHOP CHEMO - DOSE AND EXACT ROUTE NOT KNOWN.; UNK UNK, CYCLIC (6 CYCLE, RCHOP CHEMO - DOSE)
     Route: 065
     Dates: end: 20220512
  186. CYCLOPHOSPHAMIDE [Suspect]
     Active Substance: CYCLOPHOSPHAMIDE
     Indication: B-cell lymphoma
     Dosage: RCHOP CHEMO - DOSE AND EXACT ROUTE NOT KNOWN.; UNK UNK, CYCLIC (RCHOP CHEMO)
     Route: 065
     Dates: end: 20220512
  187. CYCLOPHOSPHAMIDE [Suspect]
     Active Substance: CYCLOPHOSPHAMIDE
     Indication: B-cell lymphoma
     Dosage: RCHOP CHEMO - DOSE AND EXACT ROUTE NOT KNOWN.; UNK UNK, CYCLIC (6 CYCLE, RCHOP CHEMO - DOSE)
     Route: 065
     Dates: end: 20220512
  188. CYCLOPHOSPHAMIDE [Suspect]
     Active Substance: CYCLOPHOSPHAMIDE
     Indication: B-cell lymphoma
     Dosage: RCHOP CHEMO - DOSE AND EXACT ROUTE NOT KNOWN.; UNK UNK, CYCLIC (RCHOP CHEMO, MOST RECENT DOSE ON ...
     Route: 065
  189. CYCLOPHOSPHAMIDE [Suspect]
     Active Substance: CYCLOPHOSPHAMIDE
     Indication: B-cell lymphoma
     Dosage: RCHOP CHEMO - DOSE AND EXACT ROUTE NOT KNOWN.; UNK UNK, CYCLIC (6 CYCLE, RCHOP CHEMO - DOSE)
     Route: 065
     Dates: end: 20220512
  190. CYCLOPHOSPHAMIDE [Suspect]
     Active Substance: CYCLOPHOSPHAMIDE
     Indication: B-cell lymphoma
     Dosage: UNK UNK, CYCLIC (RCHOP CHEMO - DOSE AND EXACT ROUTE N); RCHOP CHEMO - DOSE AND EXACT ROUTE NOT KN...
     Route: 065
  191. CYCLOPHOSPHAMIDE [Suspect]
     Active Substance: CYCLOPHOSPHAMIDE
     Indication: B-cell lymphoma
     Dosage: TIME INTERVAL: CYCLICAL: UNK UNK, CYCLIC (6 CYCLE, RCHOP CHEMO - DOSE); RCHOP CHEMO - DOSE AND EX...
     Route: 065
     Dates: end: 20220512
  192. CYCLOPHOSPHAMIDE [Suspect]
     Active Substance: CYCLOPHOSPHAMIDE
     Indication: B-cell lymphoma
     Dosage: RCHOP CHEMO - DOSE AND EXACT ROUTE NOT KNOWN.; UNK UNK, CYCLIC (6 CYCLE, RCHOP CHEMO - DOSE)
     Route: 065
     Dates: end: 20220512
  193. PREDNISOLONE [Suspect]
     Active Substance: PREDNISOLONE
     Indication: B-cell lymphoma
     Dosage: TIME INTERVAL: CYCLICAL: RCHOP CHEMO - DOSE AND EXACT ROUTE NOT KNOWN CYCLIC (6 CYCLE, RCHOP CHEM...
     Route: 042
     Dates: end: 20220512
  194. PREDNISOLONE [Suspect]
     Active Substance: PREDNISOLONE
     Indication: B-cell lymphoma
     Dosage: UNK UNK, CYCLIC (6 CYCLE, RCHOP CHEMO - DOSE, GASTRO RESISTANT)
     Route: 065
     Dates: end: 20220512
  195. PREDNISOLONE [Suspect]
     Active Substance: PREDNISOLONE
     Indication: B-cell lymphoma
     Dosage: UNK (RCHOP CHEMO - DOSE AND EXACT R)
     Route: 065
     Dates: end: 20220512
  196. PREDNISOLONE [Suspect]
     Active Substance: PREDNISOLONE
     Indication: B-cell lymphoma
     Dosage: UNK UNK, CYCLIC (6 CYCLE, RCHOP CHEMO - DOSE)
     Route: 065
     Dates: end: 20220512
  197. PREDNISOLONE [Suspect]
     Active Substance: PREDNISOLONE
     Indication: B-cell lymphoma
     Dosage: UNK UNK, CYCLIC
     Route: 065
     Dates: end: 20220512
  198. PREDNISOLONE [Suspect]
     Active Substance: PREDNISOLONE
     Indication: B-cell lymphoma
     Dosage: TIME INTERVAL: CYCLICAL: RCHOP CHEMO - DOSE AND EXACT ROUTE NOT KNOWN CYCLIC (6 CYCLE, RCHOP CHEM...
     Route: 065
     Dates: end: 20220512
  199. PREDNISOLONE [Suspect]
     Active Substance: PREDNISOLONE
     Indication: B-cell lymphoma
     Dosage: TIME INTERVAL: CYCLICAL: UNK (RCHOP CHEMO - DOSE AND EXACT ROUTE NOT KNOWN, CYCLIC (6 CYCLE, RCHO...
     Route: 065
     Dates: end: 20220512
  200. PREDNISOLONE [Suspect]
     Active Substance: PREDNISOLONE
     Indication: B-cell lymphoma
     Dosage: TIME INTERVAL: CYCLICAL: UNK UNK, CYCLIC (6 CYCLE, RCHOP CHEMO - DOSE, GASTRO RESISTANT) - MOST R...
     Route: 065
     Dates: end: 20220512
  201. PREDNISOLONE [Suspect]
     Active Substance: PREDNISOLONE
     Indication: B-cell lymphoma
     Dosage: UNK UNK, CYCLIC
     Route: 065
     Dates: end: 20220512
  202. PREDNISOLONE [Suspect]
     Active Substance: PREDNISOLONE
     Indication: B-cell lymphoma
     Dosage: UNK UNK, CYCLIC (6 CYCLE, RCHOP CHEMO - DOSE, GASTRO RESISTAN)
     Route: 065
     Dates: end: 20220512
  203. PREDNISOLONE [Suspect]
     Active Substance: PREDNISOLONE
     Indication: B-cell lymphoma
     Dosage: UNK UNK, CYCLIC (6 CYCLE, RCHOP CHEMO - DOSE, GASTRO RESISTANT)
     Route: 065
     Dates: end: 20220512

REACTIONS (10)
  - Cerebellar syndrome [Unknown]
  - Balance disorder [Unknown]
  - Abnormal behaviour [Unknown]
  - Confusional state [Unknown]
  - Condition aggravated [Unknown]
  - Disease progression [Unknown]
  - Lethargy [Unknown]
  - Back pain [Unknown]
  - Off label use [Unknown]
  - Dysarthria [Unknown]

NARRATIVE: CASE EVENT DATE: 20220511
